FAERS Safety Report 8221807-9 (Version None)
Quarter: 2012Q1

REPORT INFORMATION
  Report Type: 
  Country: None (occurrence: None)
  Receive Date: 20120314
  Receipt Date: 20120307
  Transmission Date: 20120608
  Serious: Yes (Death)
  Sender: FDA-Public Use
  Company Number: DSA_48833_2012

PATIENT
  Sex: Male
  Weight: 70.7611 kg

DRUGS (9)
  1. TRIAMCINOLONE [Concomitant]
  2. BONIVA [Concomitant]
  3. NAPROXEN (ALEVE) [Concomitant]
  4. KLOR-CON [Concomitant]
  5. AMLODIPINE [Concomitant]
  6. XENAZINE [Suspect]
     Indication: DYSTONIA
     Dosage: 12.5 MG TID ORAL
     Route: 048
     Dates: start: 20100421, end: 20111126
  7. HYDROCHLOROTHIAZIDE [Concomitant]
  8. MULTIVITAMIN [Concomitant]
  9. ENLAPRIL [Concomitant]

REACTIONS (1)
  - DEATH [None]
